FAERS Safety Report 4978565-0 (Version None)
Quarter: 2006Q2

REPORT INFORMATION
  Report Type: 
  Country: None (occurrence: None)
  Receive Date: 20060414
  Receipt Date: 20050606
  Transmission Date: 20061013
  Serious: No
  Sender: FDA-Public Use
  Company Number: 200512362BCC

PATIENT
  Age: 53 Year
  Sex: Female
  Weight: 73.0291 kg

DRUGS (1)
  1. MYCELEX [Suspect]
     Indication: VULVOVAGINAL MYCOTIC INFECTION
     Dosage: VAGINAL
     Route: 067
     Dates: start: 20050501

REACTIONS (2)
  - BURNING SENSATION [None]
  - DYSURIA [None]
